FAERS Safety Report 18431578 (Version 2)
Quarter: 2020Q4

REPORT INFORMATION
  Report Type: Spontaneous
  Country: GB (occurrence: GB)
  Receive Date: 20201027
  Receipt Date: 20201225
  Transmission Date: 20210114
  Serious: Yes (Other)
  Sender: FDA-Public Use
  Company Number: GB-BIOVITRUM-2020GB5623

PATIENT
  Age: 28 Year
  Sex: Male

DRUGS (1)
  1. ANAKINRA [Suspect]
     Active Substance: ANAKINRA
     Indication: PRODUCT USED FOR UNKNOWN INDICATION

REACTIONS (4)
  - Transplant failure [Unknown]
  - Fluid imbalance [Recovered/Resolved]
  - Liver function test abnormal [Recovered/Resolved]
  - Haemophagocytic lymphohistiocytosis [Unknown]
